FAERS Safety Report 12318488 (Version 1)
Quarter: 2016Q2

REPORT INFORMATION
  Report Type: Spontaneous
  Country: US (occurrence: None)
  Receive Date: 20160428
  Receipt Date: 20160428
  Transmission Date: 20160815
  Serious: Yes (Hospitalization)
  Sender: FDA-Public Use
  Company Number: None

PATIENT
  Age: 65 Year
  Sex: Female
  Weight: 54.84 kg

DRUGS (10)
  1. BENZTROPINE 1 MG [Suspect]
     Active Substance: BENZTROPINE
     Indication: EXTRAPYRAMIDAL DISORDER
     Dosage: 13-24-APR-2016?1 MG TWICE DAILY BY MOUTH
     Route: 048
     Dates: start: 201604
  2. GABAPENTIN. [Concomitant]
     Active Substance: GABAPENTIN
  3. HYDROXYZINE 25 MG HERITAGE PHARMACEUTICALS [Suspect]
     Active Substance: HYDROXYZINE HYDROCHLORIDE
     Indication: AGITATION
     Dosage: 24, 23, 21 OF APR-2016 ?25 MG DAILY BY MOUTH
     Route: 048
     Dates: start: 201604
  4. HALOPERIDOL. [Concomitant]
     Active Substance: HALOPERIDOL
  5. ATENOLOL. [Concomitant]
     Active Substance: ATENOLOL
  6. BENZTROPINE 1 MG [Suspect]
     Active Substance: BENZTROPINE
     Indication: PROPHYLAXIS
     Dosage: 13-24-APR-2016?1 MG TWICE DAILY BY MOUTH
     Route: 048
     Dates: start: 201604
  7. CLOTRIMAZOLE. [Concomitant]
     Active Substance: CLOTRIMAZOLE
  8. QUETIAPINE. [Concomitant]
     Active Substance: QUETIAPINE
  9. DIVALPROEX [Concomitant]
     Active Substance: DIVALPROEX SODIUM
  10. ACETOMINOPHEN [Concomitant]

REACTIONS (7)
  - Confusional state [None]
  - Delusion [None]
  - No therapeutic response [None]
  - Abdominal pain [None]
  - Constipation [None]
  - Urinary retention [None]
  - Hypertension [None]

NARRATIVE: CASE EVENT DATE: 20160424
